FAERS Safety Report 18554995 (Version 1)
Quarter: 2020Q4

REPORT INFORMATION
  Report Type: Spontaneous
  Country: US (occurrence: US)
  Receive Date: 20201127
  Receipt Date: 20201127
  Transmission Date: 20210114
  Serious: Yes (Death)
  Sender: FDA-Public Use
  Company Number: US-PURDUE-USA-2020-0173057

PATIENT
  Age: 64 Year
  Sex: Female

DRUGS (19)
  1. MS CONTIN [Suspect]
     Active Substance: MORPHINE SULFATE
     Indication: POST LAMINECTOMY SYNDROME
     Dosage: 30 MG, Q8H
     Route: 048
     Dates: start: 20160504
  2. MS CONTIN [Suspect]
     Active Substance: MORPHINE SULFATE
     Indication: RADICULOPATHY
     Dosage: 60 MG, Q12H
     Route: 048
     Dates: start: 20160111
  3. MS CONTIN [Suspect]
     Active Substance: MORPHINE SULFATE
     Dosage: 100 MG, Q8H
     Route: 048
     Dates: start: 20150706
  4. ROBAXIN [Concomitant]
     Active Substance: METHOCARBAMOL
     Indication: MYALGIA
     Dosage: 500 MG, Q8H
     Route: 048
     Dates: start: 20150916
  5. ZANAFLEX [Concomitant]
     Active Substance: TIZANIDINE HYDROCHLORIDE
     Indication: MYALGIA
     Dosage: 4 MG, NOCTE PRN
     Route: 048
     Dates: start: 20160504
  6. SYNTHROID [Concomitant]
     Active Substance: LEVOTHYROXINE SODIUM
     Indication: PRODUCT USED FOR UNKNOWN INDICATION
     Dosage: UNK
     Route: 065
  7. NEURONTIN [Concomitant]
     Active Substance: GABAPENTIN
     Indication: SEIZURE
     Dosage: 800 MG, Q8H
     Route: 048
     Dates: start: 20150916
  8. DIAZEPAM. [Concomitant]
     Active Substance: DIAZEPAM
     Indication: PRODUCT USED FOR UNKNOWN INDICATION
     Dosage: UNK
     Route: 065
  9. OXYCODONE HCL TABLETS (RHODES 91-490) [Suspect]
     Active Substance: OXYCODONE HYDROCHLORIDE
     Dosage: 15 MG, Q6H
     Route: 048
     Dates: start: 20160111
  10. FENTANYL. [Suspect]
     Active Substance: FENTANYL
     Indication: RADICULOPATHY
     Dosage: 75 MCG/HR, Q72H
     Route: 062
     Dates: start: 20150916
  11. OXYCODONE HCL TABLETS (RHODES 91-490) [Suspect]
     Active Substance: OXYCODONE HYDROCHLORIDE
     Indication: RADICULOPATHY
     Dosage: 20 MG, QID PRN
     Route: 048
     Dates: start: 20160830
  12. NEURONTIN [Concomitant]
     Active Substance: GABAPENTIN
     Indication: PARAESTHESIA
  13. OXYCODONE HCL TABLETS (RHODES 91-490) [Suspect]
     Active Substance: OXYCODONE HYDROCHLORIDE
     Dosage: 15 MG, QID PRN
     Route: 048
     Dates: start: 20160504
  14. MORPHINE SULFATE (SIMILAR TO NDA 19-516) [Suspect]
     Active Substance: MORPHINE SULFATE
     Indication: RADICULOPATHY
  15. KEPPRA [Concomitant]
     Active Substance: LEVETIRACETAM
     Indication: SEIZURE
     Dosage: 1000 MG, Q12H
     Route: 048
     Dates: start: 20150916
  16. OXYCODONE HCL TABLETS (RHODES 91-490) [Suspect]
     Active Substance: OXYCODONE HYDROCHLORIDE
     Indication: POST LAMINECTOMY SYNDROME
     Dosage: 30 MG, TID PRN
     Route: 048
     Dates: start: 20170424
  17. FENTANYL. [Suspect]
     Active Substance: FENTANYL
     Indication: POST LAMINECTOMY SYNDROME
     Dosage: 100 MCG/HR, Q48H
     Route: 062
     Dates: start: 20151111
  18. KLONOPIN [Concomitant]
     Active Substance: CLONAZEPAM
     Indication: ANXIETY DISORDER
     Dosage: 1 MG, BID PRN
     Route: 048
     Dates: start: 20150916
  19. MORPHINE SULFATE (SIMILAR TO NDA 19-516) [Suspect]
     Active Substance: MORPHINE SULFATE
     Indication: POST LAMINECTOMY SYNDROME
     Dosage: 30 MG, Q6H PRN
     Route: 048
     Dates: start: 20151111

REACTIONS (2)
  - Myocardial infarction [Fatal]
  - Death [Fatal]

NARRATIVE: CASE EVENT DATE: 20171001
